FAERS Safety Report 5709773-9 (Version None)
Quarter: 2008Q2

REPORT INFORMATION
  Report Type: 
  Country: None (occurrence: None)
  Receive Date: 20080418
  Receipt Date: 20080410
  Transmission Date: 20081010
  Serious: Yes (Hospitalization)
  Sender: FDA-Public Use
  Company Number: FR-ROCHE-532412

PATIENT
  Sex: Female

DRUGS (23)
  1. PEGASYS [Suspect]
     Indication: HEPATITIS C
     Dosage: FREQUENCY REPORTED AS PER WEEK.
     Route: 058
     Dates: start: 20070503, end: 20070830
  2. RIBAVIRIN [Suspect]
     Indication: HEPATITIS C
     Dosage: DOSING AMOUNT: 6, UNITS NOT REPORTED
     Route: 048
     Dates: start: 20070503, end: 20070906
  3. EPOETIN BETA [Suspect]
     Dosage: 30,000 UNIT GIVEN PER WEEK.
     Route: 058
     Dates: start: 20070531, end: 20070905
  4. NEUPOGEN [Concomitant]
     Route: 058
     Dates: start: 20070803, end: 20070905
  5. STABLON [Concomitant]
     Dates: start: 20070120
  6. LEXOMIL [Concomitant]
     Dates: start: 20070628
  7. PARACETAMOL [Concomitant]
     Dates: start: 20070531, end: 20070824
  8. MINIPHASE [Concomitant]
     Dosage: GIVEN 1 CAPSULE PER DAY
  9. MINIPHASE [Concomitant]
     Dosage: GIVEN 1 CAPSULE PER DAY
  10. DAFALGAN [Concomitant]
     Dates: start: 20070825, end: 20070827
  11. TRAMADOL HCL [Concomitant]
     Dates: start: 20070825, end: 20070826
  12. TRAMADOL HCL [Concomitant]
     Dates: start: 20070825, end: 20070826
  13. NEXIUM [Concomitant]
     Dates: start: 20070826, end: 20070826
  14. LOVENOX [Concomitant]
     Route: 058
     Dates: start: 20070825, end: 20070902
  15. ZALDIAR [Concomitant]
     Dosage: DOSE REPORTED AS [225MG/1,950G]/PER DAY
     Dates: start: 20070827, end: 20070906
  16. ZALDIAR [Concomitant]
     Dosage: DOSE REPORTED AS [225MG/1,950G]/PER DAY
     Dates: start: 20070827, end: 20070906
  17. AUGMENTIN '125' [Concomitant]
     Route: 041
     Dates: start: 20070824, end: 20070825
  18. AUGMENTIN '125' [Concomitant]
     Route: 041
     Dates: start: 20070824, end: 20070825
  19. PERFALGAN [Concomitant]
     Route: 041
     Dates: start: 20070824, end: 20070825
  20. CONTRAMAL [Concomitant]
     Route: 041
     Dates: start: 20070824, end: 20070825
  21. FLAGYL [Concomitant]
     Route: 041
     Dates: start: 20070825, end: 20070826
  22. ROCEPHIN [Concomitant]
     Route: 041
     Dates: start: 20070825, end: 20070826
  23. OMEPRAZOLE [Concomitant]
     Route: 041
     Dates: start: 20070825, end: 20070825

REACTIONS (1)
  - APPENDICITIS [None]
